FAERS Safety Report 21978306 (Version 1)
Quarter: 2023Q1

REPORT INFORMATION
  Report Type: Spontaneous
  Country: CN (occurrence: CN)
  Receive Date: 20230210
  Receipt Date: 20230210
  Transmission Date: 20230418
  Serious: Yes (Other)
  Sender: FDA-Public Use
  Company Number: CN-PFIZER INC-PV202300025690

PATIENT
  Age: 60 Year
  Sex: Female
  Weight: 60 kg

DRUGS (2)
  1. EPIRUBICIN HYDROCHLORIDE [Suspect]
     Active Substance: EPIRUBICIN HYDROCHLORIDE
     Indication: Breast cancer
     Dosage: 100 MG, D1
     Route: 041
     Dates: start: 20230118, end: 20230118
  2. PACLITAXEL [Suspect]
     Active Substance: PACLITAXEL
     Indication: Breast cancer
     Dosage: 280 MG, D1
     Route: 041
     Dates: start: 20230118, end: 20230118

REACTIONS (1)
  - Temperature intolerance [Recovering/Resolving]

NARRATIVE: CASE EVENT DATE: 20230118
